FAERS Safety Report 4627729-4 (Version None)
Quarter: 2005Q2

REPORT INFORMATION
  Report Type: 
  Country: None (occurrence: None)
  Receive Date: 20050401
  Receipt Date: 20050328
  Transmission Date: 20051028
  Serious: Yes (Disabling, Other)
  Sender: FDA-Public Use
  Company Number: THQ2004A00211

PATIENT
  Age: 77 Year
  Sex: Male

DRUGS (3)
  1. LUPRON DEPOT [Suspect]
     Indication: PROSTATE CANCER
     Dosage: 7.5 MG (7.5 MG, 1 IN 1 M) INTRAMUSCULAR
     Route: 030
     Dates: start: 19890101, end: 20030901
  2. OMEPRAZOLE [Concomitant]
  3. UNKNOWN MEDICATION [Concomitant]

REACTIONS (18)
  - ANAEMIA [None]
  - AORTIC ATHEROSCLEROSIS [None]
  - ARTERITIS [None]
  - BONE PAIN [None]
  - CARTILAGE INJURY [None]
  - HAEMORRHAGE [None]
  - MYALGIA [None]
  - MYELODYSPLASTIC SYNDROME [None]
  - OEDEMA PERIPHERAL [None]
  - PAIN [None]
  - PIGMENTED NAEVUS [None]
  - POLLAKIURIA [None]
  - POOR PERIPHERAL CIRCULATION [None]
  - PRURITUS [None]
  - RELAPSING POLYCHONDRITIS [None]
  - SKIN NODULE [None]
  - THROMBOSIS [None]
  - VENOUS THROMBOSIS LIMB [None]
